FAERS Safety Report 7457826-X (Version None)
Quarter: 2011Q2

REPORT INFORMATION
  Report Type: 
  Country: None (occurrence: None)
  Receive Date: 20110504
  Receipt Date: 20110421
  Transmission Date: 20111010
  Serious: Yes (Other)
  Sender: FDA-Public Use
  Company Number: PHHY2010US88920

PATIENT
  Sex: Female
  Weight: 99 kg

DRUGS (7)
  1. ATENOLOL [Concomitant]
     Dosage: 50 MG, BID
  2. FEMARA [Suspect]
     Dosage: 2.5 MG, QD
     Route: 048
     Dates: start: 20100201
  3. GABAPENTIN [Concomitant]
     Dosage: 100 MG
  4. BUPROPION HCL [Concomitant]
     Dosage: 150 MG, UNK
  5. ISOSORBIDE DINITRATE [Concomitant]
     Dosage: 60 MG
  6. PLAVIX [Concomitant]
     Dosage: 75 MG
  7. RANITIDINE [Concomitant]
     Dosage: 150 MG, BID

REACTIONS (3)
  - RADIATION PNEUMONITIS [None]
  - LUNG NEOPLASM MALIGNANT [None]
  - NEOPLASM MALIGNANT [None]
